FAERS Safety Report 16207928 (Version 9)
Quarter: 2021Q4

REPORT INFORMATION
  Report Type: Spontaneous
  Country: US (occurrence: US)
  Receive Date: 20190417
  Receipt Date: 20211029
  Transmission Date: 20220303
  Serious: Yes (Other)
  Sender: FDA-Public Use
  Company Number: US-PFIZER INC-2018408862

PATIENT
  Age: 53 Year
  Sex: Female
  Weight: 88 kg

DRUGS (15)
  1. LYRICA [Suspect]
     Active Substance: PREGABALIN
     Indication: Multiple sclerosis
     Dosage: 200 MG, 4X/DAY
     Route: 048
  2. LYRICA [Suspect]
     Active Substance: PREGABALIN
     Indication: Fibromyalgia
     Dosage: 600 MG, DAILY
     Route: 048
  3. LYRICA [Suspect]
     Active Substance: PREGABALIN
     Indication: Pain
     Dosage: 800 MG, DAILY
     Dates: start: 2015
  4. LYRICA [Suspect]
     Active Substance: PREGABALIN
     Dosage: 200 MG, 1X/DAY
     Route: 048
     Dates: start: 20190820, end: 2019
  5. LYRICA [Suspect]
     Active Substance: PREGABALIN
     Dosage: 200 MG, 4X/DAY
     Route: 048
     Dates: start: 20191119
  6. LYRICA [Suspect]
     Active Substance: PREGABALIN
     Dosage: 200 MG, 4X/DAY
     Route: 048
     Dates: start: 20200914
  7. MORPHINE [Concomitant]
     Active Substance: MORPHINE
     Indication: Multiple sclerosis
     Dosage: 30 MG, 2X/DAY
     Route: 048
     Dates: start: 2016
  8. GILENYA [Concomitant]
     Active Substance: FINGOLIMOD HYDROCHLORIDE
     Indication: Multiple sclerosis
     Dosage: 0.5 MG, 1X/DAY
     Route: 048
     Dates: start: 2010
  9. LEVOTHYROXINE [Concomitant]
     Active Substance: LEVOTHYROXINE
     Indication: Thyroid disorder
     Dosage: 150 UG, 1X/DAY
     Route: 048
     Dates: start: 1999
  10. PANTOPRAZOLE [Concomitant]
     Active Substance: PANTOPRAZOLE
     Indication: Gastrooesophageal reflux disease
     Dosage: 40 MG, 1X/DAY
     Route: 048
     Dates: start: 2013
  11. DIAZEPAM [Concomitant]
     Active Substance: DIAZEPAM
     Indication: Anxiety
     Dosage: 10 MG, 2X/DAY
     Route: 048
     Dates: start: 2014
  12. DIAZEPAM [Concomitant]
     Active Substance: DIAZEPAM
     Indication: Muscle spasms
  13. TIZANIDINE [Concomitant]
     Active Substance: TIZANIDINE
     Indication: Muscle spasms
     Dosage: 8 MG, 1X/DAY
     Route: 048
     Dates: start: 2016
  14. NABUMETONE [Concomitant]
     Active Substance: NABUMETONE
     Indication: Back pain
     Dosage: 750 MG, AS NEEDED
     Route: 048
     Dates: start: 2017
  15. NABUMETONE [Concomitant]
     Active Substance: NABUMETONE
     Indication: Pain in extremity

REACTIONS (10)
  - Cervix carcinoma [Unknown]
  - Haemorrhage [Unknown]
  - Therapeutic product effect incomplete [Unknown]
  - Prescribed overdose [Unknown]
  - Memory impairment [Not Recovered/Not Resolved]
  - Fall [Not Recovered/Not Resolved]
  - Arthritis [Unknown]
  - Osteoarthritis [Not Recovered/Not Resolved]
  - Nausea [Unknown]
  - Intentional product use issue [Unknown]

NARRATIVE: CASE EVENT DATE: 20160101
